FAERS Safety Report 9162638 (Version 2)
Quarter: 2013Q1

REPORT INFORMATION
  Report Type: Spontaneous
  Country: US (occurrence: US)
  Receive Date: 20130314
  Receipt Date: 20130329
  Transmission Date: 20140127
  Serious: Yes (Hospitalization)
  Sender: FDA-Public Use
  Company Number: US-SANOFI-AVENTIS-2013SA023800

PATIENT
  Age: 56 Year
  Sex: Female

DRUGS (2)
  1. AUBAGIO [Suspect]
     Indication: MULTIPLE SCLEROSIS
     Route: 048
     Dates: start: 20130226
  2. DILANTIN [Suspect]
     Route: 065

REACTIONS (7)
  - Convulsion [Unknown]
  - Drug level decreased [Recovering/Resolving]
  - Hypoaesthesia [Unknown]
  - Balance disorder [Unknown]
  - Drug ineffective [Unknown]
  - Nausea [Unknown]
  - Hepatic enzyme abnormal [Recovering/Resolving]
